FAERS Safety Report 5134448-7 (Version None)
Quarter: 2006Q4

REPORT INFORMATION
  Report Type: 
  Country: None (occurrence: None)
  Receive Date: 20061025
  Receipt Date: 20060906
  Transmission Date: 20070319
  Serious: Yes (Other)
  Sender: FDA-Public Use
  Company Number: JP-BAYER-200611024BYL

PATIENT
  Age: 71 Year
  Sex: Male
  Weight: 56 kg

DRUGS (7)
  1. ADALAT [Suspect]
     Indication: HYPERTENSION
     Dosage: UNIT DOSE: 20 MG
     Route: 048
     Dates: start: 20050602
  2. MICARDIS [Concomitant]
     Indication: HYPERTENSION
     Dosage: TOTAL DAILY DOSE: 20 MG  UNIT DOSE: 20 MG
     Route: 048
     Dates: start: 20050602, end: 20050719
  3. OLMESARTAN MEDOXOMIL [Concomitant]
     Indication: HYPERTENSION
     Dosage: UNIT DOSE: 10 MG
     Route: 048
     Dates: start: 20050724
  4. KAMAG [Concomitant]
     Route: 048
  5. GLIMICRON [Concomitant]
     Indication: DIABETES MELLITUS
     Dosage: UNIT DOSE: 40 MG
     Route: 048
     Dates: start: 20050620
  6. LANSOPRAZOLE [Concomitant]
     Indication: GASTRIC ULCER
     Dosage: TOTAL DAILY DOSE: 15 MG  UNIT DOSE: 15 MG
     Route: 048
     Dates: start: 20050602, end: 20050708
  7. FAMOTIDINE [Concomitant]
     Indication: GASTRITIS
     Dosage: UNIT DOSE: 10 MG
     Route: 048
     Dates: start: 20050709

REACTIONS (1)
  - BUNDLE BRANCH BLOCK LEFT [None]
